FAERS Safety Report 19617470 (Version 1)
Quarter: 2021Q3

REPORT INFORMATION
  Report Type: Spontaneous
  Country: US (occurrence: US)
  Receive Date: 20210727
  Receipt Date: 20210727
  Transmission Date: 20211014
  Serious: No
  Sender: FDA-Public Use
  Company Number: US-ABBVIE-21K-163-3920905-00

PATIENT

DRUGS (1)
  1. SYNTHROID [Suspect]
     Active Substance: LEVOTHYROXINE SODIUM
     Indication: PRODUCT USED FOR UNKNOWN INDICATION
     Route: 048
     Dates: start: 202105

REACTIONS (6)
  - Feeling abnormal [Unknown]
  - Malaise [Unknown]
  - Temperature intolerance [Unknown]
  - Blood pressure decreased [Unknown]
  - Adverse food reaction [Unknown]
  - Anxiety [Unknown]

NARRATIVE: CASE EVENT DATE: 202105
